FAERS Safety Report 12591299 (Version 1)
Quarter: 2016Q3

REPORT INFORMATION
  Report Type: Spontaneous
  Country: US (occurrence: None)
  Receive Date: 20160725
  Receipt Date: 20160725
  Transmission Date: 20161109
  Serious: Yes (Hospitalization, Disabling)
  Sender: FDA-Public Use
  Company Number: None

PATIENT
  Age: 31 Year
  Sex: Female
  Weight: 58.51 kg

DRUGS (1)
  1. LYRICA [Suspect]
     Active Substance: PREGABALIN
     Indication: PAIN
     Route: 048
     Dates: start: 20160715, end: 20160718

REACTIONS (5)
  - Retinal disorder [None]
  - Blood glucose increased [None]
  - Eye haemorrhage [None]
  - Vision blurred [None]
  - Blood potassium increased [None]

NARRATIVE: CASE EVENT DATE: 20160718
